FAERS Safety Report 10877828 (Version 1)
Quarter: 2015Q1

REPORT INFORMATION
  Report Type: Spontaneous
  Country: FR (occurrence: FR)
  Receive Date: 20150302
  Receipt Date: 20150302
  Transmission Date: 20150721
  Serious: Yes (Hospitalization)
  Sender: FDA-Public Use
  Company Number: FR-ASTRAZENECA-2015SE18650

PATIENT
  Age: 31720 Day
  Sex: Female
  Weight: 76 kg

DRUGS (11)
  1. INEXIUM [Suspect]
     Active Substance: ESOMEPRAZOLE
     Route: 048
     Dates: start: 201411, end: 201412
  2. INEXIUM [Suspect]
     Active Substance: ESOMEPRAZOLE
     Route: 048
     Dates: start: 20150130, end: 20150203
  3. VIDAZA [Concomitant]
     Active Substance: AZACITIDINE
     Route: 058
     Dates: start: 20150118, end: 20150120
  4. CEFTRIAXONE. [Concomitant]
     Active Substance: CEFTRIAXONE
  5. ATENOLOL. [Concomitant]
     Active Substance: ATENOLOL
     Indication: HYPERTENSION
  6. VIDAZA [Concomitant]
     Active Substance: AZACITIDINE
     Route: 058
     Dates: start: 20150112, end: 20150115
  7. VIDAZA [Concomitant]
     Active Substance: AZACITIDINE
     Route: 058
     Dates: start: 20141114, end: 20141120
  8. CIPROFLOXACINE [Concomitant]
     Active Substance: CIPROFLOXACIN
  9. VIDAZA [Concomitant]
     Active Substance: AZACITIDINE
     Route: 058
     Dates: start: 20141204, end: 20141210
  10. INEXIUM [Suspect]
     Active Substance: ESOMEPRAZOLE
     Dosage: ONCE/SINGLE ADMINISTRATION
     Route: 048
     Dates: start: 20150112, end: 20150112
  11. AMLOR [Concomitant]
     Active Substance: AMLODIPINE BESYLATE
     Indication: HYPERTENSION

REACTIONS (3)
  - Acute kidney injury [Recovering/Resolving]
  - Proteinuria [Recovering/Resolving]
  - Tubulointerstitial nephritis [Unknown]

NARRATIVE: CASE EVENT DATE: 20150130
